FAERS Safety Report 10949235 (Version 1)
Quarter: 2015Q1

REPORT INFORMATION
  Report Type: Spontaneous
  Country: US (occurrence: None)
  Receive Date: 20150323
  Receipt Date: 20150323
  Transmission Date: 20150721
  Serious: No
  Sender: FDA-Public Use
  Company Number: None

PATIENT
  Sex: Female

DRUGS (17)
  1. TRIAMTERENE POWDER [Concomitant]
  2. ALLOPURINOL. [Concomitant]
     Active Substance: ALLOPURINOL
  3. AROMASIN [Concomitant]
     Active Substance: EXEMESTANE
  4. CALCITONONIN [Concomitant]
  5. TRIAMTERENE POW [Concomitant]
  6. ZINC [Concomitant]
     Active Substance: ZINC\ZINC CHLORIDE
  7. AFINITOR [Suspect]
     Active Substance: EVEROLIMUS
     Indication: BREAST CANCER
     Route: 048
     Dates: start: 20141229, end: 201503
  8. CITALOPRAM [Concomitant]
     Active Substance: CITALOPRAM HYDROBROMIDE
  9. SIMVASTATIN POW [Concomitant]
  10. VITAMIN B12 [Concomitant]
     Active Substance: CYANOCOBALAMIN
  11. METOPROLOL [Concomitant]
     Active Substance: METOPROLOL
  12. TRAMADOL HCL POW [Concomitant]
  13. CYCLOBENZAPR POW HCL [Concomitant]
  14. AFINITOR [Concomitant]
     Active Substance: EVEROLIMUS
  15. IBUPROFEN POW [Concomitant]
  16. MORPHINE POW SULFATE [Concomitant]
  17. AFINITOR [Concomitant]
     Active Substance: EVEROLIMUS

REACTIONS (1)
  - Metastasis [None]
